FAERS Safety Report 6394102-0 (Version None)
Quarter: 2009Q4

REPORT INFORMATION
  Report Type: 
  Country: None (occurrence: None)
  Receive Date: 20091008
  Receipt Date: 20090930
  Transmission Date: 20100525
  Serious: Yes (Other)
  Sender: FDA-Public Use
  Company Number: US-SANOFI-SYNTHELABO-A03200904539

PATIENT
  Age: 39 Year
  Sex: Female

DRUGS (1)
  1. AMBIEN CR [Suspect]
     Indication: INSOMNIA
     Route: 048

REACTIONS (1)
  - IMPAIRED DRIVING ABILITY [None]
